FAERS Safety Report 11350410 (Version 1)
Quarter: 2015Q3

REPORT INFORMATION
  Report Type: Other
  Country: FR (occurrence: FR)
  Receive Date: 20150807
  Receipt Date: 20150807
  Transmission Date: 20151125
  Serious: Yes (Hospitalization)
  Sender: FDA-Public Use
  Company Number: FR-SYMPLMED PHARMACEUTICALS-2015SYMPLMED000031

PATIENT

DRUGS (6)
  1. IMOVANE [Suspect]
     Active Substance: ZOPICLONE
     Indication: PRODUCT USED FOR UNKNOWN INDICATION
     Dosage: UNK
     Route: 048
     Dates: start: 20131228, end: 20140423
  2. LYRICA [Suspect]
     Active Substance: PREGABALIN
     Indication: ABNORMAL BEHAVIOUR
     Dosage: 50 MG, UNK
     Route: 048
     Dates: start: 20140324, end: 20140423
  3. COVERAM [Suspect]
     Active Substance: AMLODIPINE\PERINDOPRIL
     Indication: HYPERTENSION
     Dosage: 10MG/10MG TABLET, UNKNOWN
     Route: 048
     Dates: start: 20140324, end: 20140417
  4. TEGRETOL [Concomitant]
     Active Substance: CARBAMAZEPINE
     Indication: ABNORMAL BEHAVIOUR
     Dosage: SEE NARRATIVE TEXT
     Route: 065
     Dates: start: 20140205, end: 20140505
  5. ATARAX [Concomitant]
     Active Substance: HYDROXYZINE\HYDROXYZINE HYDROCHLORIDE
     Indication: PRODUCT USED FOR UNKNOWN INDICATION
     Dosage: UNK
     Route: 065
     Dates: start: 20140418
  6. COVERSYL                           /00790703/ [Suspect]
     Active Substance: PERINDOPRIL
     Indication: HYPERTENSION
     Dosage: 10 MG TABLET, UNKNOWN
     Route: 048
     Dates: start: 20140417, end: 20140423

REACTIONS (7)
  - Skin exfoliation [Recovered/Resolved]
  - Oedema peripheral [Recovered/Resolved]
  - Eosinophilia [Unknown]
  - Rash [Recovered/Resolved]
  - Face oedema [Recovered/Resolved]
  - Eczema [Recovered/Resolved]
  - Purpura [Recovered/Resolved]

NARRATIVE: CASE EVENT DATE: 20140415
